FAERS Safety Report 25133894 (Version 1)
Quarter: 2025Q1

REPORT INFORMATION
  Report Type: Spontaneous
  Country: GB (occurrence: GB)
  Receive Date: 20250328
  Receipt Date: 20250328
  Transmission Date: 20250409
  Serious: Yes (Other)
  Sender: CIPLA
  Company Number: GB-MHRA-TPP18736982C4534566YC1742289195885

PATIENT

DRUGS (9)
  1. RIVAROXABAN [Suspect]
     Active Substance: RIVAROXABAN
     Indication: Ill-defined disorder
     Route: 065
     Dates: start: 20250310
  2. LOPERAMIDE [Concomitant]
     Active Substance: LOPERAMIDE
     Indication: Ill-defined disorder
     Dosage: TAKE ONE OR TWO CAPSULES TWICE A DAY (BID), INCREASE ...
     Route: 065
     Dates: start: 20250310
  3. SCHERIPROCT [CINCHOCAINE HYDROCHLORIDE;CLEMIZOLE UNDECYLENATE;HEXACHLO [Concomitant]
     Indication: Ill-defined disorder
     Route: 054
     Dates: start: 20250318
  4. BRINZOLAMIDE [Concomitant]
     Active Substance: BRINZOLAMIDE
     Indication: Ill-defined disorder
     Dosage: 1 DROP, BID (IN BOTH THE EYES)
     Route: 065
     Dates: start: 20240612
  5. CANDESARTAN [Concomitant]
     Active Substance: CANDESARTAN
     Indication: Ill-defined disorder
     Dosage: 1 DOSAGE FORM, QD
     Route: 065
     Dates: start: 20240612
  6. LATANOPROST [Concomitant]
     Active Substance: LATANOPROST
     Indication: Ill-defined disorder
     Dosage: 1 DROP, QD
     Route: 065
     Dates: start: 20240612
  7. ALBUTEROL SULFATE [Concomitant]
     Active Substance: ALBUTEROL SULFATE
     Indication: Ill-defined disorder
     Dates: start: 20240612
  8. SOPROBEC [Concomitant]
     Indication: Ill-defined disorder
     Dosage: 2 DOSAGE FORM (PUFFS), BID
     Dates: start: 20240612
  9. RIVAROXABAN [Concomitant]
     Active Substance: RIVAROXABAN
     Indication: Ill-defined disorder
     Dosage: 1 DOSAGE FORM, QD WITH FOOD
     Route: 065
     Dates: start: 20241216, end: 20250310

REACTIONS (1)
  - Diarrhoea haemorrhagic [Recovered/Resolved]

NARRATIVE: CASE EVENT DATE: 20250318
